FAERS Safety Report 9490833 (Version 1)
Quarter: 2013Q3

REPORT INFORMATION
  Report Type: Spontaneous
  Country: PH (occurrence: PH)
  Receive Date: 20130830
  Receipt Date: 20130830
  Transmission Date: 20140515
  Serious: Yes (Hospitalization)
  Sender: FDA-Public Use
  Company Number: PH-EISAI INC-E7389-04146-SPO-PH

PATIENT
  Age: 40 Year
  Sex: Female

DRUGS (2)
  1. HALAVEN [Suspect]
     Indication: BREAST CANCER METASTATIC
     Route: 041
     Dates: start: 20130807, end: 20130807
  2. HERCEPTIN [Concomitant]
     Dosage: UNKNOWN
     Route: 065

REACTIONS (2)
  - Pneumonia [Recovered/Resolved]
  - Stomatitis [Recovered/Resolved]
